FAERS Safety Report 14871494 (Version 1)
Quarter: 2018Q2

REPORT INFORMATION
  Report Type: Spontaneous
  Country: GB (occurrence: GB)
  Receive Date: 20180509
  Receipt Date: 20180509
  Transmission Date: 20180711
  Serious: Yes (Other)
  Sender: FDA-Public Use
  Company Number: GB-BAUSCH-BL-2018-012646

PATIENT
  Age: 70 Year
  Sex: Male

DRUGS (3)
  1. WARFARIN [Concomitant]
     Active Substance: WARFARIN
     Indication: ATRIAL FIBRILLATION
  2. TIMOLOL. [Suspect]
     Active Substance: TIMOLOL
     Indication: OPEN ANGLE GLAUCOMA
     Route: 065
  3. DORZOLAMIDE [Suspect]
     Active Substance: DORZOLAMIDE
     Indication: OPEN ANGLE GLAUCOMA
     Dosage: DROPS
     Route: 065

REACTIONS (1)
  - Therapeutic response decreased [Unknown]
